FAERS Safety Report 19458259 (Version 1)
Quarter: 2021Q2

REPORT INFORMATION
  Report Type: Spontaneous
  Country: CN (occurrence: CN)
  Receive Date: 20210624
  Receipt Date: 20210624
  Transmission Date: 20210717
  Serious: Yes (Life-Threatening)
  Sender: FDA-Public Use
  Company Number: CN-PFIZER INC-2021691070

PATIENT
  Age: 22 Year
  Sex: Female
  Weight: 58 kg

DRUGS (1)
  1. HEMABATE [Suspect]
     Active Substance: CARBOPROST TROMETHAMINE
     Indication: LABOUR AUGMENTATION
     Dosage: 250 UG, 1X/DAY
     Route: 041
     Dates: start: 20210430, end: 20210430

REACTIONS (10)
  - Subarachnoid haemorrhage [Unknown]
  - Product use issue [Recovered/Resolved]
  - Seizure [Unknown]
  - Eclampsia [Unknown]
  - Headache [Not Recovered/Not Resolved]
  - Somnolence [Unknown]
  - Cerebral venous sinus thrombosis [Unknown]
  - Craniocerebral injury [Unknown]
  - Cerebrovascular disorder [Unknown]
  - Off label use [Recovered/Resolved]

NARRATIVE: CASE EVENT DATE: 20210430
